FAERS Safety Report 8547870-3 (Version None)
Quarter: 2012Q3

REPORT INFORMATION
  Report Type: 
  Country: None (occurrence: None)
  Receive Date: 20120727
  Receipt Date: 20120718
  Transmission Date: 20120928
  Serious: Yes (Hospitalization, Other)
  Sender: FDA-Public Use
  Company Number: US-ASTRAZENECA-2011SE39246

PATIENT
  Age: 73 Year
  Sex: Female
  Weight: 63.5 kg

DRUGS (9)
  1. SEROQUEL [Suspect]
     Route: 048
  2. LITHIUM CARBONATE [Concomitant]
  3. SEROQUEL [Suspect]
     Indication: DEPRESSION
     Route: 048
     Dates: start: 20090101
  4. OSCAL OTC [Concomitant]
  5. SEROQUEL [Suspect]
     Route: 048
  6. PREVACID [Concomitant]
  7. COUMADIN [Concomitant]
  8. SEROQUEL [Suspect]
     Indication: BIPOLAR DISORDER
     Route: 048
     Dates: start: 20090101
  9. SYNTHROID [Concomitant]

REACTIONS (8)
  - OSTEOPOROSIS [None]
  - DRUG DOSE OMISSION [None]
  - INSOMNIA [None]
  - SEIZURE LIKE PHENOMENA [None]
  - FOOT DEFORMITY [None]
  - URINARY TRACT INFECTION [None]
  - BIPOLAR I DISORDER [None]
  - FATIGUE [None]
